FAERS Safety Report 9924959 (Version 2)
Quarter: 2014Q1

REPORT INFORMATION
  Report Type: Spontaneous
  Country: CA (occurrence: None)
  Receive Date: 20140221
  Receipt Date: 20140225
  Transmission Date: 20141002
  Serious: Yes (Hospitalization)
  Sender: FDA-Public Use
  Company Number: CA-014748

PATIENT
  Age: 75 Year
  Sex: Male

DRUGS (4)
  1. FIRMAGON [Suspect]
     Indication: PROSTATE CANCER
     Route: 058
     Dates: start: 20131204
  2. TOLOXIN [Concomitant]
  3. KETAMINE [Concomitant]
  4. VENLAFAXINE [Concomitant]

REACTIONS (3)
  - Iodine allergy [None]
  - Hypersensitivity [None]
  - Contrast media reaction [None]
